FAERS Safety Report 13824635 (Version 1)
Quarter: 2017Q3

REPORT INFORMATION
  Report Type: Report from Study
  Country: US (occurrence: US)
  Receive Date: 20170802
  Receipt Date: 20170802
  Transmission Date: 20171127
  Serious: Yes (Death)
  Sender: FDA-Public Use
  Company Number: US-PFIZER INC-2017328492

PATIENT

DRUGS (5)
  1. CYTARABINE. [Suspect]
     Active Substance: CYTARABINE
     Indication: PLASMA CELL MYELOMA
     Dosage: 400 MG/M2, CYCLIC, DAILY (DAY -5 TO DAY -2)
  2. MELPHALAN. [Suspect]
     Active Substance: MELPHALAN
     Indication: PLASMA CELL MYELOMA
     Dosage: 140 MG/M2, CYCLIC (ON DAY -1)
  3. IXAZOMIB [Suspect]
     Active Substance: IXAZOMIB
     Indication: PLASMA CELL MYELOMA
     Dosage: 4 MG, CYCLIC (ON DAYS 1 AND 14 OF A 28-DAY CYCLE) (CONTINUE FOR UP TO 24 CYCLES)
     Route: 048
  4. ETOPOSIDE. [Suspect]
     Active Substance: ETOPOSIDE
     Indication: PLASMA CELL MYELOMA
     Dosage: 200 MG/M2, CYCLIC, DAILY (DAY -5 TO DAY -2)
  5. CARMUSTINE [Suspect]
     Active Substance: CARMUSTINE
     Indication: PLASMA CELL MYELOMA
     Dosage: 300 MG/M2, CYCLIC (ON DAY -6)

REACTIONS (2)
  - Acute graft versus host disease [Fatal]
  - Adenovirus infection [Fatal]
